FAERS Safety Report 15668335 (Version 1)
Quarter: 2018Q4

REPORT INFORMATION
  Report Type: Spontaneous
  Country: ES (occurrence: ES)
  Receive Date: 20181129
  Receipt Date: 20181129
  Transmission Date: 20190205
  Serious: Yes (Other)
  Sender: FDA-Public Use
  Company Number: ES-AUROBINDO-AUR-APL-2018-057422

PATIENT
  Sex: Male

DRUGS (1)
  1. RIVASTIGMINE 9.5 MG [Suspect]
     Active Substance: RIVASTIGMINE
     Indication: DEMENTIA
     Dosage: 9.5 MG 24 H
     Route: 062

REACTIONS (5)
  - Suicide attempt [Unknown]
  - Product adhesion issue [Unknown]
  - Headache [Unknown]
  - Suicidal ideation [Unknown]
  - Depression [Unknown]
